FAERS Safety Report 4698518-X (Version None)
Quarter: 2005Q2

REPORT INFORMATION
  Report Type: 
  Country: None (occurrence: None)
  Receive Date: 20050623
  Receipt Date: 20050525
  Transmission Date: 20051028
  Serious: Yes (Life-Threatening, Other)
  Sender: FDA-Public Use
  Company Number: GB-NOVOPROD-244397

PATIENT
  Age: 63 Year
  Sex: Male

DRUGS (1)
  1. NOVOLOG MIX 70/30 [Suspect]
     Indication: INSULIN-REQUIRING TYPE II DIABETES MELLITUS
     Dosage: 20 IU, QD
     Route: 058
     Dates: start: 20050523, end: 20050523

REACTIONS (4)
  - DRUG HYPERSENSITIVITY [None]
  - DYSPHAGIA [None]
  - FEAR [None]
  - SWOLLEN TONGUE [None]
